FAERS Safety Report 5389404-0 (Version None)
Quarter: 2007Q3

REPORT INFORMATION
  Report Type: 
  Country: None (occurrence: None)
  Receive Date: 20070717
  Receipt Date: 20070709
  Transmission Date: 20080115
  Serious: Yes (Other)
  Sender: FDA-Public Use
  Company Number: NZ-ASTRAZENECA-2007AP04148

PATIENT
  Age: 65 Year
  Sex: Male

DRUGS (3)
  1. ZOLADEX [Suspect]
     Route: 058
  2. ACETAMINOPHEN [Concomitant]
  3. DICLOFENAC [Concomitant]

REACTIONS (1)
  - PSYCHOTIC DISORDER [None]
